FAERS Safety Report 6731292-1 (Version None)
Quarter: 2010Q2

REPORT INFORMATION
  Report Type: 
  Country: None (occurrence: None)
  Receive Date: 20100517
  Receipt Date: 20100517
  Transmission Date: 20101027
  Serious: Yes (Other)
  Sender: FDA-Public Use
  Company Number: None

PATIENT
  Age: 33 Year
  Sex: Female
  Weight: 100.2449 kg

DRUGS (2)
  1. CIPROFLOXACIN HCL [Suspect]
     Indication: NEPHROLITHIASIS
     Dosage: 500 MG TAB 2X DAY PO
     Route: 048
     Dates: start: 20100502, end: 20100509
  2. CIPROFLOXACIN HCL [Suspect]
     Indication: URINARY TRACT INFECTION
     Dosage: 500 MG TAB 2X DAY PO
     Route: 048
     Dates: start: 20100502, end: 20100509

REACTIONS (2)
  - ARTHRALGIA [None]
  - BACK PAIN [None]
